FAERS Safety Report 8126909-3 (Version None)
Quarter: 2012Q1

REPORT INFORMATION
  Report Type: 
  Country: None (occurrence: None)
  Receive Date: 20120210
  Receipt Date: 20120206
  Transmission Date: 20120608
  Serious: Yes (Other)
  Sender: FDA-Public Use
  Company Number: US-PFIZER INC-2012033301

PATIENT
  Sex: Female
  Weight: 61.224 kg

DRUGS (5)
  1. CYMBALTA [Concomitant]
     Indication: MUSCULOSKELETAL DISORDER
  2. CYMBALTA [Concomitant]
     Indication: NEURITIS
     Dosage: 30 MG, DAILY
  3. LYRICA [Suspect]
     Indication: FIBROMYALGIA
     Dosage: 50 MG, 3X/DAY
     Route: 048
     Dates: start: 20120101, end: 20120101
  4. TOPAMAX [Concomitant]
     Indication: MIGRAINE
     Dosage: 100 MG, 2X/DAY
  5. LYRICA [Suspect]
     Dosage: 50 MG, UNK
     Route: 048
     Dates: start: 20120101, end: 20120206

REACTIONS (8)
  - HYPERSENSITIVITY [None]
  - ABDOMINAL PAIN UPPER [None]
  - PARAESTHESIA MUCOSAL [None]
  - LIP SWELLING [None]
  - PARAESTHESIA ORAL [None]
  - PHARYNGEAL OEDEMA [None]
  - SWOLLEN TONGUE [None]
  - PAIN [None]
